FAERS Safety Report 20047276 (Version 13)
Quarter: 2024Q2

REPORT INFORMATION
  Report Type: Spontaneous
  Country: US (occurrence: US)
  Receive Date: 20211109
  Receipt Date: 20240418
  Transmission Date: 20240716
  Serious: Yes (Death, Hospitalization, Other)
  Sender: FDA-Public Use
  Company Number: US-NOVARTISPH-NVSC2021US255204

PATIENT
  Age: 75 Year
  Sex: Female
  Weight: 82 kg

DRUGS (1)
  1. KYMRIAH [Suspect]
     Active Substance: TISAGENLECLEUCEL
     Indication: Diffuse large B-cell lymphoma
     Dosage: UNK, ONCE/SINGLE
     Route: 042
     Dates: start: 20200929, end: 20200929

REACTIONS (24)
  - Peripheral T-cell lymphoma unspecified [Fatal]
  - Second primary malignancy [Fatal]
  - Encephalopathy [Unknown]
  - Pyrexia [Unknown]
  - Cardiac arrest [Unknown]
  - Arterial haemorrhage [Unknown]
  - Renal impairment [Unknown]
  - Hypogammaglobulinaemia [Unknown]
  - Chronic kidney disease [Unknown]
  - Haemoperitoneum [Unknown]
  - Arterial injury [Unknown]
  - Retroperitoneal haematoma [Unknown]
  - Coronary artery disease [Unknown]
  - Oliguria [Unknown]
  - Oesophageal disorder [Unknown]
  - Acquired oesophageal web [Unknown]
  - Gastrooesophageal reflux disease [Unknown]
  - Dysphagia [Unknown]
  - Hyperlipidaemia [Unknown]
  - Hypertension [Unknown]
  - Haematoma [Unknown]
  - Spinal osteoarthritis [Unknown]
  - Pleural effusion [Unknown]
  - Generalised oedema [Unknown]

NARRATIVE: CASE EVENT DATE: 20211026
